FAERS Safety Report 23266347 (Version 1)
Quarter: 2023Q4

REPORT INFORMATION
  Report Type: Spontaneous
  Country: CH (occurrence: CH)
  Receive Date: 20231206
  Receipt Date: 20231206
  Transmission Date: 20240109
  Serious: Yes (Hospitalization, Other)
  Sender: FDA-Public Use
  Company Number: None

PATIENT
  Age: 38 Year
  Sex: Female

DRUGS (8)
  1. ENOXAPARIN SODIUM [Suspect]
     Active Substance: ENOXAPARIN SODIUM
     Indication: Varicose vein
     Dosage: EXACT START AND STOP DATE UNKNOWN, STARTED IN 2. TRIMESTER OF PREGNANCY 40MG QD
     Route: 058
     Dates: start: 2017, end: 2017
  2. FRAGMIN [Suspect]
     Active Substance: DALTEPARIN SODIUM
     Indication: Thrombophlebitis
     Dosage: 5000IU QD
     Route: 058
     Dates: start: 2018, end: 2019
  3. FRAGMIN [Suspect]
     Active Substance: DALTEPARIN SODIUM
     Dosage: 7000 IU, QD
     Route: 058
     Dates: start: 2019
  4. FRAGMIN [Suspect]
     Active Substance: DALTEPARIN SODIUM
     Dosage: 5000 IU, QD
     Route: 058
     Dates: start: 202112
  5. FRAGMIN [Suspect]
     Active Substance: DALTEPARIN SODIUM
     Dosage: 15000IU QD
     Route: 058
     Dates: start: 20220118
  6. FRAGMIN [Suspect]
     Active Substance: DALTEPARIN SODIUM
     Dosage: APPLICATION TWICE DAILY: 7500-0-10000 IE.
     Route: 058
     Dates: start: 20220311
  7. ASPIRIN [Concomitant]
     Active Substance: ASPIRIN
     Dosage: UNK
     Dates: start: 2018, end: 20220117
  8. ASPIRIN [Concomitant]
     Active Substance: ASPIRIN
     Dosage: 100 MG, QD
     Dates: start: 20220118, end: 2022

REACTIONS (2)
  - Thoracic vertebral fracture [Recovering/Resolving]
  - Osteoporosis [Recovering/Resolving]

NARRATIVE: CASE EVENT DATE: 20220901
